FAERS Safety Report 14023032 (Version 5)
Quarter: 2017Q4

REPORT INFORMATION
  Report Type: Spontaneous
  Country: BR (occurrence: BR)
  Receive Date: 20170929
  Receipt Date: 20171227
  Transmission Date: 20180321
  Serious: Yes (Hospitalization, Other)
  Sender: FDA-Public Use
  Company Number: BR-PFIZER INC-2017416834

PATIENT
  Age: 64 Year
  Sex: Male

DRUGS (2)
  1. SUTENT [Suspect]
     Active Substance: SUNITINIB MALATE
     Indication: RENAL CANCER
     Dosage: ONE TABLET (50 MG), DAILY
     Dates: start: 20170908
  2. SUTENT [Suspect]
     Active Substance: SUNITINIB MALATE
     Dosage: UNK
     Dates: start: 20170909

REACTIONS (15)
  - Vision blurred [Recovered/Resolved]
  - Diarrhoea [Recovered/Resolved]
  - Vomiting [Recovered/Resolved]
  - Aggression [Recovered/Resolved]
  - Arthralgia [Recovered/Resolved]
  - Retching [Recovered/Resolved]
  - Gait disturbance [Recovered/Resolved]
  - Feeling abnormal [Recovered/Resolved]
  - Dehydration [Recovered/Resolved]
  - Infection [Recovered/Resolved]
  - Confusional state [Recovered/Resolved]
  - Memory impairment [Unknown]
  - Asthenia [Recovered/Resolved]
  - Delirium [Recovered/Resolved]
  - Weight decreased [Not Recovered/Not Resolved]
